FAERS Safety Report 20858174 (Version 1)
Quarter: 2022Q2

REPORT INFORMATION
  Report Type: Spontaneous
  Country: US (occurrence: US)
  Receive Date: 20220521
  Receipt Date: 20220521
  Transmission Date: 20220721
  Serious: Yes (Other)
  Sender: FDA-Public Use
  Company Number: US-BRISTOL-MYERS SQUIBB COMPANY-2022-041847

PATIENT
  Age: 80 Year
  Sex: Female
  Weight: 45.359 kg

DRUGS (5)
  1. ELIQUIS [Suspect]
     Active Substance: APIXABAN
     Indication: Thrombosis prophylaxis
     Dosage: DOSE : 2.5MG;     FREQ : TWICE A DAY
     Route: 048
     Dates: start: 202203
  2. ELIQUIS [Suspect]
     Active Substance: APIXABAN
     Indication: Hypertension
  3. PROPRANOLOL [Concomitant]
     Active Substance: PROPRANOLOL HYDROCHLORIDE
     Dosage: BEEN ON THIS MEDICATION FOR 20 YEARS
  4. DIOVAN [Concomitant]
     Active Substance: VALSARTAN
     Dosage: BEEN ON IT FOR A COUPLE OF YEARS
  5. ALPRAZOLAM [Concomitant]
     Active Substance: ALPRAZOLAM
     Dosage: 0.5MG AS NEEDED, TAKES 1/2 A TABLET BY MOUTH.

REACTIONS (11)
  - Diarrhoea [Unknown]
  - Abdominal pain upper [Unknown]
  - Faeces discoloured [Unknown]
  - Skin discolouration [Unknown]
  - Haemorrhage [Unknown]
  - Illness [Unknown]
  - Contusion [Unknown]
  - Pain [Unknown]
  - Visual impairment [Unknown]
  - Intentional product use issue [Unknown]
  - Dyspepsia [Unknown]

NARRATIVE: CASE EVENT DATE: 20220401
